FAERS Safety Report 24358783 (Version 2)
Quarter: 2024Q4

REPORT INFORMATION
  Report Type: Spontaneous
  Country: KW (occurrence: KW)
  Receive Date: 20240924
  Receipt Date: 20241003
  Transmission Date: 20250115
  Serious: Yes (Other)
  Sender: PFIZER
  Company Number: KW-PFIZER INC-PV202400123428

PATIENT
  Age: 57 Year
  Sex: Female

DRUGS (1)
  1. LORLATINIB [Suspect]
     Active Substance: LORLATINIB
     Indication: Lung adenocarcinoma
     Dosage: 100 MG
     Dates: start: 20240505

REACTIONS (3)
  - Second primary malignancy [Unknown]
  - Meningioma [Unknown]
  - Dyslipidaemia [Not Recovered/Not Resolved]

NARRATIVE: CASE EVENT DATE: 20240518
